FAERS Safety Report 19031343 (Version 2)
Quarter: 2021Q1

REPORT INFORMATION
  Report Type: Spontaneous
  Country: US (occurrence: US)
  Receive Date: 20210319
  Receipt Date: 20210324
  Transmission Date: 20210420
  Serious: No
  Sender: FDA-Public Use
  Company Number: US-BAYER-2021-102234

PATIENT
  Age: 79 Year
  Sex: Female

DRUGS (1)
  1. ALEVE [Suspect]
     Active Substance: NAPROXEN SODIUM
     Indication: PAIN
     Dosage: 2 DF, BID
     Route: 048
     Dates: start: 20210307, end: 20210308

REACTIONS (3)
  - Throat irritation [Recovering/Resolving]
  - Abdominal discomfort [Recovering/Resolving]
  - Extra dose administered [None]

NARRATIVE: CASE EVENT DATE: 20210307
